FAERS Safety Report 14305760 (Version 2)
Quarter: 2018Q2

REPORT INFORMATION
  Report Type: Spontaneous
  Country: FR (occurrence: FR)
  Receive Date: 20171219
  Receipt Date: 20180410
  Transmission Date: 20180711
  Serious: Yes (Disabling, Other)
  Sender: FDA-Public Use
  Company Number: FR-MYLANLABS-2017M1079554

PATIENT
  Age: 32 Year
  Sex: Male

DRUGS (35)
  1. RIVOTRIL [Suspect]
     Active Substance: CLONAZEPAM
     Indication: NECK PAIN
     Dosage: 5-8 DROPS
     Route: 065
     Dates: start: 20110219, end: 20110302
  2. TETRAZEPAM [Suspect]
     Active Substance: TETRAZEPAM
     Dosage: UNK
     Route: 048
  3. ATARAX [Suspect]
     Active Substance: HYDROXYZINE HYDROCHLORIDE
     Indication: PRODUCT USED FOR UNKNOWN INDICATION
     Route: 048
  4. MIOREL [Concomitant]
     Dosage: 1 DF, QD
     Route: 048
     Dates: start: 20101210
  5. SOLUPRED (PREDNISOLONE) [Concomitant]
     Active Substance: PREDNISOLONE
     Indication: PRODUCT USED FOR UNKNOWN INDICATION
     Route: 048
  6. STRESAM [Concomitant]
     Active Substance: ETIFOXINE
     Indication: PRODUCT USED FOR UNKNOWN INDICATION
     Route: 048
  7. PRAXINOR [Concomitant]
     Indication: PRODUCT USED FOR UNKNOWN INDICATION
     Route: 048
     Dates: start: 20101127
  8. RIVOTRIL [Suspect]
     Active Substance: CLONAZEPAM
     Dosage: 15 GTT, UNK
     Route: 065
     Dates: start: 20110303, end: 20110327
  9. LAROXYL [Suspect]
     Active Substance: AMITRIPTYLINE HYDROCHLORIDE
     Indication: NECK PAIN
     Dosage: 5-8 DROPS
     Route: 065
     Dates: start: 20110219
  10. DOLIPRANE [Concomitant]
     Active Substance: ACETAMINOPHEN
     Dosage: 1 DF, QD
     Route: 048
     Dates: start: 20110201
  11. NUREFLEX [Concomitant]
     Active Substance: IBUPROFEN
     Indication: PRODUCT USED FOR UNKNOWN INDICATION
     Route: 048
  12. PAROXETINE. [Suspect]
     Active Substance: PAROXETINE
     Indication: PRODUCT USED FOR UNKNOWN INDICATION
     Dosage: 2 TO 3 WEEKS
     Route: 048
  13. RIVOTRIL [Suspect]
     Active Substance: CLONAZEPAM
     Indication: NECK PAIN
     Route: 065
  14. RIVOTRIL [Suspect]
     Active Substance: CLONAZEPAM
     Dosage: 5-8 DROPS
     Route: 065
     Dates: start: 20110328
  15. TETRAZEPAM [Suspect]
     Active Substance: TETRAZEPAM
     Dosage: UNK
     Route: 048
  16. TEMERIT [Suspect]
     Active Substance: NEBIVOLOL
     Indication: CARDIAC DISORDER
     Dosage: 2 DF, QD
     Route: 048
     Dates: start: 20110510, end: 201207
  17. DI-ANTALVIC [Suspect]
     Active Substance: ACETAMINOPHEN\PROPOXYPHENE HYDROCHLORIDE
     Indication: PAIN
  18. DOLIPRANE [Concomitant]
     Active Substance: ACETAMINOPHEN
     Dosage: 1 DF, QD
     Route: 048
     Dates: start: 20110328
  19. RIVOTRIL [Suspect]
     Active Substance: CLONAZEPAM
     Dosage: UNK
     Route: 065
  20. TETRAZEPAM [Suspect]
     Active Substance: TETRAZEPAM
     Indication: PRODUCT USED FOR UNKNOWN INDICATION
     Route: 048
  21. IXEL [Suspect]
     Active Substance: MILNACIPRAN HYDROCHLORIDE
     Indication: PANIC ATTACK
     Dosage: 2 DF, QD
     Route: 048
     Dates: start: 20110322
  22. IXEL [Suspect]
     Active Substance: MILNACIPRAN HYDROCHLORIDE
     Indication: PANIC ATTACK
  23. TEMERIT [Suspect]
     Active Substance: NEBIVOLOL
     Indication: CARDIAC DISORDER
     Dosage: 2 DF, QD
     Route: 048
     Dates: start: 20110718, end: 201207
  24. SEROPRAM (CITALOPRAM HYDROBROMIDE) [Suspect]
     Active Substance: CITALOPRAM HYDROBROMIDE
     Indication: PRODUCT USED FOR UNKNOWN INDICATION
     Route: 048
  25. LAROXYL [Suspect]
     Active Substance: AMITRIPTYLINE HYDROCHLORIDE
     Indication: NECK PAIN
  26. MIOREL [Concomitant]
     Indication: PRODUCT USED FOR UNKNOWN INDICATION
     Dosage: 1 DF, QD
     Route: 048
     Dates: start: 20101213
  27. UVEDOSE [Concomitant]
     Active Substance: CHOLECALCIFEROL
     Indication: PRODUCT USED FOR UNKNOWN INDICATION
     Dosage: 1000000 IU
     Route: 065
     Dates: start: 20110219
  28. VALIUM [Concomitant]
     Active Substance: DIAZEPAM
     Indication: PRODUCT USED FOR UNKNOWN INDICATION
     Route: 051
     Dates: start: 20101115, end: 20101115
  29. COVATINE [Concomitant]
     Active Substance: CAPTODIAME HYDROCHLORIDE
     Indication: PRODUCT USED FOR UNKNOWN INDICATION
     Route: 048
  30. TEMERIT [Suspect]
     Active Substance: NEBIVOLOL
     Indication: CARDIAC DISORDER
     Dosage: 2 DF, QD
     Route: 048
     Dates: start: 20101115, end: 20110509
  31. DI-ANTALVIC [Suspect]
     Active Substance: ACETAMINOPHEN\PROPOXYPHENE HYDROCHLORIDE
     Indication: PAIN
     Dosage: 2 DF, QID
     Route: 048
     Dates: start: 20100606
  32. MIOREL [Concomitant]
     Dosage: 1 DF, QD
     Route: 048
     Dates: start: 20100606
  33. MIOREL [Concomitant]
     Dosage: 1 DF, QD
     Route: 048
     Dates: start: 20110201
  34. TANGANIL [Concomitant]
     Active Substance: ACETYLLEUCINE
     Indication: PRODUCT USED FOR UNKNOWN INDICATION
     Route: 048
     Dates: start: 20110303
  35. DOLIPRANE [Concomitant]
     Active Substance: ACETAMINOPHEN
     Indication: PRODUCT USED FOR UNKNOWN INDICATION
     Dosage: 1 DF, QD
     Route: 048
     Dates: start: 20101213

REACTIONS (24)
  - Personal relationship issue [Recovered/Resolved]
  - Tinnitus [Recovered/Resolved]
  - Drug intolerance [Recovering/Resolving]
  - Visual impairment [Recovered/Resolved]
  - Agoraphobia [Recovered/Resolved]
  - Pain in extremity [Unknown]
  - Intervertebral disc disorder [Unknown]
  - Memory impairment [Recovered/Resolved]
  - Neurosis [Recovered/Resolved]
  - Dyspnoea [Unknown]
  - Post-traumatic stress disorder [Recovered/Resolved]
  - Panic attack [Recovered/Resolved]
  - Suicidal ideation [Recovered/Resolved]
  - Anxiety [Recovered/Resolved]
  - Tachycardia [Recovered/Resolved]
  - Asthenia [Unknown]
  - Hypoacusis [Recovered/Resolved]
  - Malaise [Recovered/Resolved]
  - Musculoskeletal pain [Unknown]
  - Psychotic disorder [Recovered/Resolved]
  - Hallucination, auditory [Recovered/Resolved]
  - Erectile dysfunction [Recovering/Resolving]
  - Hypertonia [Unknown]
  - Adverse event [Unknown]

NARRATIVE: CASE EVENT DATE: 2010
